FAERS Safety Report 9608129 (Version 1)
Quarter: 2013Q4

REPORT INFORMATION
  Report Type: Spontaneous
  Country: US (occurrence: US)
  Receive Date: 20131009
  Receipt Date: 20131009
  Transmission Date: 20140711
  Serious: No
  Sender: FDA-Public Use
  Company Number: US-PFIZER INC-2013285121

PATIENT
  Age: 60 Year
  Sex: Female
  Weight: 120 kg

DRUGS (2)
  1. TIKOSYN [Suspect]
     Indication: HEART RATE INCREASED
     Dosage: UNK, 2X/DAY
     Dates: start: 201211
  2. VITAMIN C [Concomitant]
     Indication: VITAMIN C DECREASED
     Dosage: UNK

REACTIONS (4)
  - Hypothyroidism [Not Recovered/Not Resolved]
  - Vitamin D decreased [Not Recovered/Not Resolved]
  - Blood iron decreased [Not Recovered/Not Resolved]
  - Weight increased [Unknown]
